FAERS Safety Report 17288254 (Version 2)
Quarter: 2020Q2

REPORT INFORMATION
  Report Type: Other
  Country: US (occurrence: US)
  Receive Date: 20200120
  Receipt Date: 20200417
  Transmission Date: 20200713
  Serious: No
  Sender: FDA-Public Use
  Company Number: US-APOTEX-2019AP026520

PATIENT

DRUGS (1)
  1. ENOXAPARIN SODIUM INJECTION [Suspect]
     Active Substance: ENOXAPARIN SODIUM
     Indication: PREGNANCY
     Dosage: UNK
     Route: 065

REACTIONS (6)
  - Injection site bruising [Unknown]
  - Injury associated with device [Unknown]
  - Product substitution issue [Unknown]
  - Needle issue [Unknown]
  - Injection site pain [Unknown]
  - Injection site haemorrhage [Unknown]
